FAERS Safety Report 11697752 (Version 1)
Quarter: 2015Q4

REPORT INFORMATION
  Report Type: Spontaneous
  Country: US (occurrence: US)
  Receive Date: 20151104
  Receipt Date: 20151104
  Transmission Date: 20160304
  Serious: No
  Sender: FDA-Public Use
  Company Number: US-PFIZER INC-2015371060

PATIENT
  Age: 35 Year
  Sex: Female
  Weight: 122 kg

DRUGS (15)
  1. METFORMIN [Concomitant]
     Active Substance: METFORMIN HYDROCHLORIDE
     Indication: POLYCYSTIC OVARIES
     Dosage: 500 MG, 1X/DAY TABLET BY MOUTH
     Route: 048
     Dates: start: 20151006
  2. CARAFATE [Concomitant]
     Active Substance: SUCRALFATE
     Dosage: 2 DF, 2 TEASPOONS, 4X/DAY (1GM/10ML SUSPENSION) BY MOUTH
     Route: 048
  3. PANTOPRAZOLE [Suspect]
     Active Substance: PANTOPRAZOLE SODIUM
     Indication: EROSIVE OESOPHAGITIS
  4. BUDESONIDE. [Concomitant]
     Active Substance: BUDESONIDE
     Indication: ENTERITIS
     Dosage: 3MG CAPSULE, DAILY EVERY MORNING BY MOUTH
     Route: 048
     Dates: start: 20150928
  5. GABAPENTIN. [Concomitant]
     Active Substance: GABAPENTIN
     Indication: NEURALGIA
     Dosage: 300 MG, 2X/DAY BY MOUTH
     Route: 048
     Dates: start: 20150904
  6. PANTOPRAZOLE [Suspect]
     Active Substance: PANTOPRAZOLE SODIUM
     Indication: IRRITABLE BOWEL SYNDROME
  7. CARAFATE [Concomitant]
     Active Substance: SUCRALFATE
     Dosage: 2 DF, AS NEEDED 1GM/10ML SUSPENSION BY MOUTH
     Route: 048
  8. EVENING PRIMROSE OIL [Concomitant]
     Active Substance: EVENING PRIMROSE OIL
     Indication: FACTOR V LEIDEN CARRIER
  9. BUDESONIDE. [Concomitant]
     Active Substance: BUDESONIDE
     Dosage: 2 DF, DAILY CAPSULES EVERY MORNING
     Dates: start: 201510
  10. LORATADINE. [Concomitant]
     Active Substance: LORATADINE
     Indication: HYPERSENSITIVITY
     Dosage: 10 MG, 1X/DAY CAPLET BY MOUTH
     Route: 048
  11. PANTOPRAZOLE [Suspect]
     Active Substance: PANTOPRAZOLE SODIUM
     Indication: GASTROOESOPHAGEAL REFLUX DISEASE
     Dosage: 40 MG, 1X/DAY (ONCE A DAY)
     Route: 048
  12. PANTOPRAZOLE [Suspect]
     Active Substance: PANTOPRAZOLE SODIUM
     Indication: ENTERITIS
  13. MULTIVITAMIN [Concomitant]
     Active Substance: VITAMINS
     Dosage: 1 DF, DAILY BY MOUTH
     Route: 048
  14. PANTOPRAZOLE [Suspect]
     Active Substance: PANTOPRAZOLE SODIUM
     Indication: GASTRIC DISORDER
     Dosage: 40 MG, 2X/DAY TABLETS BY MOUTH
     Route: 048
     Dates: start: 20150919
  15. EVENING PRIMROSE OIL [Concomitant]
     Active Substance: EVENING PRIMROSE OIL
     Indication: BREAST PAIN
     Dosage: 1000 MG, DAILY; 1 CAPSULE BY MOUTH AT NIGHT
     Route: 048

REACTIONS (1)
  - Drug screen false positive [Unknown]

NARRATIVE: CASE EVENT DATE: 20151026
